FAERS Safety Report 6669181-3 (Version None)
Quarter: 2010Q2

REPORT INFORMATION
  Report Type: 
  Country: None (occurrence: None)
  Receive Date: 20100406
  Receipt Date: 20100324
  Transmission Date: 20101027
  Serious: Yes (Disabling, Other)
  Sender: FDA-Public Use
  Company Number: CA-PFIZER INC-2010009112

PATIENT
  Age: 53 Year
  Sex: Male
  Weight: 81.633 kg

DRUGS (2)
  1. CHAMPIX [Suspect]
     Indication: SMOKING CESSATION THERAPY
     Dosage: 1 MG, 2X/DAY
     Route: 048
     Dates: start: 20091203, end: 20091216
  2. KEFLEX [Suspect]
     Indication: SKIN INFECTION
     Dosage: 500 MG, 4X/DAY
     Route: 048
     Dates: start: 20091214, end: 20091216

REACTIONS (1)
  - DERMATITIS EXFOLIATIVE [None]
